FAERS Safety Report 21820895 (Version 4)
Quarter: 2023Q4

REPORT INFORMATION
  Report Type: Report from Study
  Country: JP (occurrence: JP)
  Receive Date: 20230105
  Receipt Date: 20231212
  Transmission Date: 20240110
  Serious: Yes (Hospitalization, Other)
  Sender: FDA-Public Use
  Company Number: JP-002147023-NVSJ2022JP277238

PATIENT
  Age: 46 Year
  Sex: Female
  Weight: 59.2 kg

DRUGS (35)
  1. KESIMPTA [Suspect]
     Active Substance: OFATUMUMAB
     Indication: Relapsing-remitting multiple sclerosis
     Dosage: 20 MG, ONCE/SINGLE
     Route: 058
     Dates: start: 20211005, end: 20211005
  2. KESIMPTA [Suspect]
     Active Substance: OFATUMUMAB
     Dosage: 20 MG, ONCE/SINGLE
     Route: 058
     Dates: start: 20211012, end: 20211012
  3. KESIMPTA [Suspect]
     Active Substance: OFATUMUMAB
     Dosage: 20 MG, ONCE/SINGLE
     Route: 058
     Dates: start: 20211019, end: 20211019
  4. KESIMPTA [Suspect]
     Active Substance: OFATUMUMAB
     Dosage: 20 MG, ONCE/SINGLE
     Route: 058
     Dates: start: 20211102, end: 20211102
  5. KESIMPTA [Suspect]
     Active Substance: OFATUMUMAB
     Dosage: 20 MG, ONCE/SINGLE
     Route: 058
     Dates: start: 20211130, end: 20211130
  6. KESIMPTA [Suspect]
     Active Substance: OFATUMUMAB
     Dosage: 20 MG, ONCE/SINGLE
     Route: 058
     Dates: start: 20211228, end: 20211228
  7. KESIMPTA [Suspect]
     Active Substance: OFATUMUMAB
     Dosage: 20 MG, ONCE/SINGLE
     Route: 058
     Dates: start: 20220125, end: 20220125
  8. KESIMPTA [Suspect]
     Active Substance: OFATUMUMAB
     Dosage: 20 MG, ONCE/SINGLE
     Route: 058
     Dates: start: 20220222, end: 20220222
  9. KESIMPTA [Suspect]
     Active Substance: OFATUMUMAB
     Dosage: 20 MG, ONCE/SINGLE
     Route: 058
     Dates: start: 20220322, end: 20220322
  10. KESIMPTA [Suspect]
     Active Substance: OFATUMUMAB
     Dosage: 20 MG, ONCE/SINGLE
     Route: 058
     Dates: start: 20220426, end: 20220426
  11. KESIMPTA [Suspect]
     Active Substance: OFATUMUMAB
     Dosage: 20 MG, ONCE/SINGLE
     Route: 058
     Dates: start: 20220531, end: 20220531
  12. KESIMPTA [Suspect]
     Active Substance: OFATUMUMAB
     Dosage: 20 MG, ONCE/SINGLE
     Route: 058
     Dates: start: 20220628, end: 20220628
  13. KESIMPTA [Suspect]
     Active Substance: OFATUMUMAB
     Dosage: 20 MG, ONCE/SINGLE
     Route: 058
     Dates: start: 20220726, end: 20220726
  14. KESIMPTA [Suspect]
     Active Substance: OFATUMUMAB
     Dosage: 20 MG, ONCE/SINGLE
     Route: 058
     Dates: start: 20220830, end: 20220830
  15. KESIMPTA [Suspect]
     Active Substance: OFATUMUMAB
     Dosage: 20 MG, ONCE/SINGLE
     Route: 058
     Dates: start: 20220927, end: 20220927
  16. KESIMPTA [Suspect]
     Active Substance: OFATUMUMAB
     Dosage: 20 MG, ONCE/SINGLE
     Route: 058
     Dates: start: 20221025, end: 20221025
  17. KESIMPTA [Suspect]
     Active Substance: OFATUMUMAB
     Dosage: 20 MG, ONCE/SINGLE
     Route: 058
     Dates: start: 20221122, end: 20221122
  18. KESIMPTA [Suspect]
     Active Substance: OFATUMUMAB
     Dosage: 20 MG, ONCE/SINGLE
     Route: 058
     Dates: start: 20221220, end: 20221220
  19. KESIMPTA [Suspect]
     Active Substance: OFATUMUMAB
     Dosage: 20 MG, ONCE/SINGLE
     Route: 058
     Dates: start: 20230122, end: 20230122
  20. KESIMPTA [Suspect]
     Active Substance: OFATUMUMAB
     Dosage: 20 MG, ONCE/SINGLE
     Route: 058
     Dates: start: 20230219, end: 20230219
  21. KESIMPTA [Suspect]
     Active Substance: OFATUMUMAB
     Dosage: 20 MG, ONCE/SINGLE
     Route: 058
     Dates: start: 20230314, end: 20230314
  22. KESIMPTA [Suspect]
     Active Substance: OFATUMUMAB
     Dosage: 20 MG, ONCE/SINGLE
     Route: 058
     Dates: start: 20230411, end: 20230411
  23. KESIMPTA [Suspect]
     Active Substance: OFATUMUMAB
     Dosage: 20 MG, ONCE/SINGLE
     Route: 058
     Dates: start: 20230509, end: 20230509
  24. KESIMPTA [Suspect]
     Active Substance: OFATUMUMAB
     Dosage: 20 MG, ONCE/SINGLE
     Route: 058
     Dates: start: 20230606, end: 20230606
  25. KESIMPTA [Suspect]
     Active Substance: OFATUMUMAB
     Dosage: 20 MG, ONCE/SINGLE
     Route: 058
     Dates: start: 20230704, end: 20230704
  26. KESIMPTA [Suspect]
     Active Substance: OFATUMUMAB
     Dosage: 20 MG, ONCE/SINGLE
     Route: 058
     Dates: start: 20230801, end: 20230801
  27. KESIMPTA [Suspect]
     Active Substance: OFATUMUMAB
     Dosage: 20 MG, ONCE/SINGLE
     Route: 058
     Dates: start: 20230829, end: 20230829
  28. KESIMPTA [Suspect]
     Active Substance: OFATUMUMAB
     Dosage: 20 MG, ONCE/SINGLE
     Route: 058
     Dates: start: 20230926, end: 20230926
  29. KESIMPTA [Suspect]
     Active Substance: OFATUMUMAB
     Dosage: 20 MG, ONCE/SINGLE
     Route: 058
     Dates: start: 20231024, end: 20231024
  30. BONALON [Concomitant]
     Active Substance: ALENDRONATE SODIUM
     Indication: Prophylaxis
     Dosage: UNK
     Route: 065
  31. CALONAL [Concomitant]
     Active Substance: ACETAMINOPHEN
     Indication: Product used for unknown indication
     Dosage: UNK
     Route: 065
  32. REBAMIPIDE [Concomitant]
     Active Substance: REBAMIPIDE
     Indication: Prophylaxis
     Dosage: UNK
     Route: 065
  33. OMEGA-3-ACID ETHYL ESTERS [Concomitant]
     Active Substance: OMEGA-3-ACID ETHYL ESTERS
     Indication: Product used for unknown indication
     Dosage: UNK
     Route: 048
  34. LOCHOL [Concomitant]
     Indication: Product used for unknown indication
     Dosage: UNK
     Route: 048
  35. ZETIA [Concomitant]
     Active Substance: EZETIMIBE
     Indication: Product used for unknown indication
     Dosage: UNK
     Route: 048

REACTIONS (2)
  - Multiple sclerosis relapse [Recovering/Resolving]
  - Lymphocyte count decreased [Unknown]

NARRATIVE: CASE EVENT DATE: 20220101
